FAERS Safety Report 7313180-5 (Version None)
Quarter: 2011Q1

REPORT INFORMATION
  Report Type: 
  Country: None (occurrence: None)
  Receive Date: 20110215
  Receipt Date: 20110215
  Transmission Date: 20110831
  Serious: Yes (Hospitalization)
  Sender: FDA-Public Use
  Company Number: None

PATIENT
  Age: 67 Year
  Sex: Male
  Weight: 114.4 kg

DRUGS (14)
  1. NEURONTIN [Concomitant]
  2. M.V.I. [Concomitant]
  3. VYTORIN [Concomitant]
  4. KEFLEX [Suspect]
     Indication: HIP ARTHROPLASTY
     Dosage: 500 MG TID PO
     Route: 048
  5. TOPROL-XL [Concomitant]
  6. FOLIC ACID [Concomitant]
  7. TEKTURNA [Concomitant]
  8. ALLOPURINOL [Concomitant]
  9. GLUCOSAMINE [Concomitant]
  10. MICARDIS [Concomitant]
  11. VIT B12 [Concomitant]
  12. COUMADIN [Suspect]
     Indication: THROMBOSIS PROPHYLAXIS
     Dosage: 5 MG DAILY PO
     Route: 048
  13. NOVOLOG [Concomitant]
  14. LASIX [Concomitant]

REACTIONS (2)
  - PROTHROMBIN TIME PROLONGED [None]
  - INTERNATIONAL NORMALISED RATIO INCREASED [None]
